FAERS Safety Report 22132044 (Version 1)
Quarter: 2023Q1

REPORT INFORMATION
  Report Type: Spontaneous
  Country: ES (occurrence: ES)
  Receive Date: 20230323
  Receipt Date: 20230323
  Transmission Date: 20230417
  Serious: Yes (Other)
  Sender: FDA-Public Use
  Company Number: ES-ANIPHARMA-2023-ES-000029

PATIENT
  Age: 52 Year
  Sex: Male

DRUGS (1)
  1. OXYCODONE [Suspect]
     Active Substance: OXYCODONE
     Indication: Osteoarthritis
     Dosage: 30 MG DAILY

REACTIONS (1)
  - Hepatotoxicity [Recovered/Resolved]
